FAERS Safety Report 13760658 (Version 1)
Quarter: 2017Q3

REPORT INFORMATION
  Report Type: Spontaneous
  Country: JP (occurrence: JP)
  Receive Date: 20170717
  Receipt Date: 20170717
  Transmission Date: 20171127
  Serious: Yes (Other)
  Sender: FDA-Public Use
  Company Number: JP-JNJFOC-20170710064

PATIENT
  Age: 47 Year
  Sex: Male

DRUGS (2)
  1. ONEDURO [Suspect]
     Active Substance: FENTANYL
     Indication: PAIN
     Route: 062
  2. ONEDURO [Suspect]
     Active Substance: FENTANYL
     Indication: PAIN
     Route: 062

REACTIONS (5)
  - Hyperhidrosis [Recovering/Resolving]
  - Drug withdrawal syndrome [Recovering/Resolving]
  - Akathisia [Recovering/Resolving]
  - Blood pressure increased [Recovering/Resolving]
  - Irritability [Recovering/Resolving]
